FAERS Safety Report 9382457 (Version 1)
Quarter: 2013Q3

REPORT INFORMATION
  Report Type: Report from Study
  Country: US (occurrence: US)
  Receive Date: 20130703
  Receipt Date: 20130703
  Transmission Date: 20140515
  Serious: Yes (Other)
  Sender: FDA-Public Use
  Company Number: US-ABBOTT-13P-163-1109864-00

PATIENT
  Age: 41 Year
  Sex: Female
  Weight: 83.99 kg

DRUGS (6)
  1. HUMIRA [Suspect]
     Indication: CROHN^S DISEASE
     Dates: start: 20130206, end: 20130206
  2. HUMIRA [Suspect]
     Dates: start: 20130220, end: 20130220
  3. HUMIRA [Suspect]
     Dates: start: 20130306, end: 20130306
  4. HUMIRA [Suspect]
     Dates: start: 20130405
  5. VITAMIN B12 [Concomitant]
     Indication: VITAMIN SUPPLEMENTATION
  6. BIRTH CONTROL PILLS [Concomitant]
     Indication: CONTRACEPTION

REACTIONS (5)
  - Middle ear effusion [Recovered/Resolved]
  - Hearing impaired [Recovered/Resolved]
  - Deafness [Recovered/Resolved]
  - Ear infection [Recovered/Resolved]
  - Nasopharyngitis [Recovered/Resolved]
